FAERS Safety Report 9434451 (Version 1)
Quarter: 2013Q3

REPORT INFORMATION
  Report Type: Spontaneous
  Country: TR (occurrence: TR)
  Receive Date: 20130801
  Receipt Date: 20130801
  Transmission Date: 20140515
  Serious: Yes (Hospitalization)
  Sender: FDA-Public Use
  Company Number: TR-JNJFOC-20130715770

PATIENT
  Age: 67 Year
  Sex: Male

DRUGS (8)
  1. XARELTO [Suspect]
     Indication: CEREBROVASCULAR ACCIDENT PROPHYLAXIS
     Route: 065
  2. XARELTO [Suspect]
     Indication: ATRIAL FIBRILLATION
     Route: 065
  3. ASPIRIN [Concomitant]
     Route: 065
  4. DELIX [Concomitant]
     Route: 065
  5. PROZAC [Concomitant]
     Route: 065
  6. SERONIL [Concomitant]
     Route: 065
  7. BELOC (METOPROLOL TARTRATE) [Concomitant]
     Route: 065
  8. INSULIN [Concomitant]
     Route: 065

REACTIONS (1)
  - Cerebrovascular accident [Recovered/Resolved]
